FAERS Safety Report 8854899 (Version 2)
Quarter: 2012Q4

REPORT INFORMATION
  Report Type: 
  Country: US (occurrence: US)
  Receive Date: 20121023
  Receipt Date: 20121030
  Transmission Date: 20130627
  Serious: Yes (Death)
  Sender: FDA-Public Use
  Company Number: US-ASTELLAS-2012US010343

PATIENT
  Sex: Male

DRUGS (4)
  1. PROGRAF [Suspect]
     Indication: SMALL INTESTINE TRANSPLANT
     Dosage: UNK
     Route: 051
     Dates: start: 20101105
  2. PROGRAF [Suspect]
     Indication: ORGAN TRANSPLANT
     Dosage: 5 mg, bid
     Route: 048
     Dates: start: 20110912
  3. PROGRAF [Suspect]
     Indication: LIVER TRANSPLANT
     Dosage: 2 mg, bid
     Route: 048
     Dates: start: 20110921
  4. PROGRAF [Suspect]
     Indication: PANCREAS TRANSPLANT
     Dosage: UNK
     Route: 048
     Dates: end: 20120202

REACTIONS (4)
  - Off label use [Unknown]
  - Incorrect route of drug administration [Unknown]
  - Cytomegalovirus infection [Fatal]
  - Coagulopathy [Fatal]
